FAERS Safety Report 12895054 (Version 3)
Quarter: 2016Q4

REPORT INFORMATION
  Report Type: Report from Study
  Country: RU (occurrence: RU)
  Receive Date: 20161029
  Receipt Date: 20161219
  Transmission Date: 20170207
  Serious: Yes (Death, Other)
  Sender: FDA-Public Use
  Company Number: RU-AMGEN-RUSNI2016150996

PATIENT
  Age: 35 Year
  Sex: Female

DRUGS (3)
  1. ICE [Concomitant]
     Active Substance: MENTHOL
     Dosage: UNK
     Dates: start: 20160822
  2. BLINATUMOMAB [Suspect]
     Active Substance: BLINATUMOMAB
     Indication: DIFFUSE LARGE B-CELL LYMPHOMA STAGE IV
     Dosage: 9 MUG/KG, CONTINUING
     Route: 042
     Dates: start: 20161019, end: 20161020
  3. ICE [Concomitant]
     Active Substance: MENTHOL
     Dosage: UNK
     Dates: start: 20160919

REACTIONS (2)
  - Neoplasm progression [Fatal]
  - Psychotic disorder [Unknown]

NARRATIVE: CASE EVENT DATE: 20161020
